FAERS Safety Report 10667490 (Version 1)
Quarter: 2014Q4

REPORT INFORMATION
  Report Type: Spontaneous
  Country: DE (occurrence: DE)
  Receive Date: 20141222
  Receipt Date: 20141222
  Transmission Date: 20150529
  Serious: Yes (Hospitalization)
  Sender: FDA-Public Use
  Company Number: DE-BRISTOL-MYERS SQUIBB COMPANY-BMS-2014-001182

PATIENT
  Age: 30 Year
  Sex: Male

DRUGS (3)
  1. ZYPREXA [Concomitant]
     Active Substance: OLANZAPINE
  2. ABILIFY [Suspect]
     Active Substance: ARIPIPRAZOLE
     Indication: SCHIZOPHRENIA
     Dosage: UNK
     Route: 065
  3. AMISULPRID [Concomitant]
     Active Substance: AMISULPRIDE

REACTIONS (1)
  - Hallucination [Not Recovered/Not Resolved]
